FAERS Safety Report 26162314 (Version 1)
Quarter: 2025Q4

REPORT INFORMATION
  Report Type: Spontaneous
  Country: CN (occurrence: CN)
  Receive Date: 20251216
  Receipt Date: 20251216
  Transmission Date: 20260118
  Serious: Yes (Other)
  Sender: ROCHE
  Company Number: CN-ROCHE-10000456767

PATIENT
  Age: 75 Year
  Sex: Male

DRUGS (3)
  1. MABTHERA [Suspect]
     Active Substance: RITUXIMAB
     Indication: Marginal zone lymphoma
     Route: 041
     Dates: start: 20251201, end: 20251202
  2. METHYLPREDNISOLONE SODIUM SUCCINATE [Concomitant]
     Active Substance: METHYLPREDNISOLONE SODIUM SUCCINATE
     Dosage: INJECTION 40 MG IVGTT
  3. SODIUM CHLORIDE [Concomitant]
     Active Substance: SODIUM CHLORIDE
     Dosage: 0.9% SODIUM CHLORIDE

REACTIONS (2)
  - Temperature intolerance [Recovered/Resolved]
  - Pyrexia [Recovering/Resolving]

NARRATIVE: CASE EVENT DATE: 20251201
